FAERS Safety Report 8887360 (Version 2)
Quarter: 2014Q2

REPORT INFORMATION
  Report Type: Spontaneous
  Country: SG (occurrence: SG)
  Receive Date: 20121101
  Receipt Date: 20131018
  Transmission Date: 20141212
  Serious: Yes (Other)
  Sender: FDA-Public Use
  Company Number: SG-PFIZER INC-2012272007

PATIENT
  Sex: Female

DRUGS (3)
  1. LIDOCAINE HCL [Suspect]
     Indication: ARTHROGRAM
     Dosage: UNK
  2. DOTAREM (TEMP) [Suspect]
     Indication: ARTHROGRAM
     Dosage: UNK
  3. IOHEXOL [Suspect]
     Indication: ARTHROGRAM
     Dosage: UNK

REACTIONS (1)
  - Rash [Recovered/Resolved]
